FAERS Safety Report 7337980-0 (Version None)
Quarter: 2011Q1

REPORT INFORMATION
  Report Type: 
  Country: None (occurrence: None)
  Receive Date: 20110228
  Receipt Date: 20110217
  Transmission Date: 20110831
  Serious: Yes (Death)
  Sender: FDA-Public Use
  Company Number: AE11-031-7

PATIENT
  Age: 57 Year
  Sex: Female

DRUGS (2)
  1. ACETAMINOPHEN/OXYCODONE [Suspect]
  2. CYCLOBENZAPRINE [Suspect]

REACTIONS (3)
  - RESPIRATORY ARREST [None]
  - COMPLETED SUICIDE [None]
  - CARDIAC ARREST [None]
